FAERS Safety Report 5243266-0 (Version None)
Quarter: 2007Q1

REPORT INFORMATION
  Report Type: 
  Country: None (occurrence: None)
  Receive Date: 20070215
  Receipt Date: 20070202
  Transmission Date: 20070707
  Serious: Yes (Death, Hospitalization, Other)
  Sender: FDA-Public Use
  Company Number: 06CZ000851

PATIENT
  Age: 72 Year
  Sex: Female

DRUGS (2)
  1. LITHIUM CARBONATE [Suspect]
     Indication: DRUG USE FOR UNKNOWN INDICATION
     Dosage: 1000 MG, QD, UNK
  2. CHEMOTHERAPY [Concomitant]

REACTIONS (13)
  - AGRANULOCYTOSIS [None]
  - BRAIN OEDEMA [None]
  - BRONCHOPNEUMONIA [None]
  - CEREBRAL HAEMORRHAGE [None]
  - COMA [None]
  - DEHYDRATION [None]
  - DRUG TOXICITY [None]
  - HAEMODIALYSIS [None]
  - HYPERTENSION [None]
  - METABOLIC DISORDER [None]
  - MUSCLE SPASMS [None]
  - SEPSIS [None]
  - VENTRICULAR FIBRILLATION [None]
